FAERS Safety Report 6016691-8 (Version None)
Quarter: 2008Q4

REPORT INFORMATION
  Report Type: 
  Country: None (occurrence: None)
  Receive Date: 20081222
  Receipt Date: 20081215
  Transmission Date: 20090506
  Serious: Yes (Other)
  Sender: FDA-Public Use
  Company Number: JP-ASTRAZENECA-2008AP07401

PATIENT
  Age: 45 Year
  Sex: Male
  Weight: 70 kg

DRUGS (7)
  1. DIPRIVAN [Suspect]
     Indication: INDUCTION AND MAINTENANCE OF ANAESTHESIA
     Dosage: DOSE UNKNOWN
     Route: 042
  2. NAROPIN [Suspect]
     Indication: EPIDURAL ANAESTHESIA
     Dosage: DOSE UNKNOWN
     Route: 008
  3. ATROPINE [Concomitant]
     Indication: PREMEDICATION
     Dosage: DOSE UNKNOWN
     Route: 030
  4. UNKNOWNDRUG [Concomitant]
     Indication: PREMEDICATION
     Dosage: DOSE UNKNOWN
     Route: 030
  5. REMIFENTANIL HYDROCHLORIDE [Concomitant]
     Indication: INDUCTION AND MAINTENANCE OF ANAESTHESIA
     Dosage: DOSE UNKNOWN
     Route: 042
  6. VECURONIUM BROMIDE [Concomitant]
     Indication: HYPOTONIA
     Dosage: DOSE UNKNOWN
     Route: 042
  7. OXYGEN [Concomitant]
     Indication: MAINTENANCE OF ANAESTHESIA
     Dosage: DOSE UNKNOWN
     Route: 055

REACTIONS (5)
  - BLOOD PRESSURE INCREASED [None]
  - CHILLS [None]
  - DYSKINESIA [None]
  - PULMONARY OEDEMA [None]
  - TACHYCARDIA [None]
